FAERS Safety Report 6586562-7 (Version None)
Quarter: 2010Q1

REPORT INFORMATION
  Report Type: 
  Country: None (occurrence: None)
  Receive Date: 20100216
  Receipt Date: 20100216
  Transmission Date: 20100710
  Serious: Yes (Other)
  Sender: FDA-Public Use
  Company Number: None

PATIENT
  Sex: Male
  Weight: 86.1834 kg

DRUGS (1)
  1. DIVALPROEX SODIUM [Suspect]
     Indication: BIPOLAR DISORDER
     Dates: start: 20100109, end: 20100201

REACTIONS (4)
  - PRODUCT SUBSTITUTION ISSUE [None]
  - PRURITUS [None]
  - RASH ERYTHEMATOUS [None]
  - SCRATCH [None]
